FAERS Safety Report 5075381-9 (Version None)
Quarter: 2006Q3

REPORT INFORMATION
  Report Type: 
  Country: None (occurrence: None)
  Receive Date: 20060714
  Receipt Date: 20060317
  Transmission Date: 20061208
  Serious: No
  Sender: FDA-Public Use
  Company Number: 2006SP001278

PATIENT
  Age: 46 Year
  Sex: Female
  Weight: 81.6475 kg

DRUGS (11)
  1. LUNESTA [Suspect]
     Indication: INSOMNIA
     Dosage: 3 MG; HS; ORAL
     Route: 048
     Dates: start: 20060301, end: 20060301
  2. DURAGESIC-100 [Concomitant]
  3. CLONAZEPAM [Concomitant]
  4. METOCLOPRAMIDE [Concomitant]
  5. PROVIGIL [Concomitant]
  6. TRAZODONE HCL [Concomitant]
  7. LITHIUM CARBONATE [Concomitant]
  8. SENNA [Concomitant]
  9. DITROPAN XL [Concomitant]
  10. NUVARING [Concomitant]
  11. ACIPHEX [Concomitant]

REACTIONS (2)
  - PAIN IN EXTREMITY [None]
  - RESTLESS LEGS SYNDROME [None]
